FAERS Safety Report 18758104 (Version 2)
Quarter: 2021Q1

REPORT INFORMATION
  Report Type: Spontaneous
  Country: US (occurrence: US)
  Receive Date: 20210119
  Receipt Date: 20210125
  Transmission Date: 20210419
  Serious: Yes (Other)
  Sender: FDA-Public Use
  Company Number: NVSC2021US008716

PATIENT
  Age: 51 Year
  Sex: Male

DRUGS (13)
  1. EPINEPHRINE. [Concomitant]
     Active Substance: EPINEPHRINE
     Indication: HAEMODYNAMIC INSTABILITY
     Dosage: UNK
     Route: 041
  2. ARGATROBAN. [Suspect]
     Active Substance: ARGATROBAN
     Indication: DEEP VEIN THROMBOSIS
     Dosage: UNK
     Route: 065
  3. HEPARIN [Concomitant]
     Active Substance: HEPARIN SODIUM
     Indication: ANTICOAGULANT THERAPY
     Dosage: UNK
     Route: 042
  4. PIPERACILLIN. [Concomitant]
     Active Substance: PIPERACILLIN SODIUM
     Indication: PNEUMONIA
     Dosage: 4 G, Q8H
     Route: 065
  5. VANCOMYCIN [Concomitant]
     Active Substance: VANCOMYCIN
     Indication: RENAL IMPAIRMENT
     Dosage: UNK
     Route: 065
  6. NOREPINEPHRINE. [Concomitant]
     Active Substance: NOREPINEPHRINE
     Indication: HAEMODYNAMIC INSTABILITY
     Dosage: UNK
     Route: 041
  7. TAZOBACTAM [Concomitant]
     Active Substance: TAZOBACTAM
     Indication: PNEUMONIA
     Dosage: 500 MG, Q8H
     Route: 065
  8. METHYLPREDNISOLONE. [Concomitant]
     Active Substance: METHYLPREDNISOLONE
     Indication: PNEUMONITIS
     Dosage: 40 MG, Q8H
     Route: 065
  9. TOCILIZUMAB. [Concomitant]
     Active Substance: TOCILIZUMAB
     Indication: RENAL IMPAIRMENT
     Dosage: UNK
     Route: 065
  10. ARGATROBAN. [Suspect]
     Active Substance: ARGATROBAN
     Indication: ANTICOAGULANT THERAPY
  11. CEFTRIAXONE. [Concomitant]
     Active Substance: CEFTRIAXONE
     Indication: PNEUMONIA
     Dosage: UNK
     Route: 065
  12. AZITHROMYCIN ANHYDROUS. [Concomitant]
     Active Substance: AZITHROMYCIN ANHYDROUS
     Indication: PNEUMONIA
     Dosage: UNK
     Route: 065
  13. HYDROXYCHLOROQUINE [Concomitant]
     Active Substance: HYDROXYCHLOROQUINE
     Indication: PNEUMONIA
     Dosage: UNK
     Route: 065

REACTIONS (3)
  - Deep vein thrombosis [Unknown]
  - Off label use [Unknown]
  - Gastrointestinal haemorrhage [Unknown]
